FAERS Safety Report 12862249 (Version 1)
Quarter: 2016Q4

REPORT INFORMATION
  Report Type: Spontaneous
  Country: US (occurrence: US)
  Receive Date: 20161018
  Receipt Date: 20161018
  Transmission Date: 20170207
  Serious: No
  Sender: FDA-Public Use
  Company Number: None

PATIENT
  Age: 8 Month
  Sex: Male
  Weight: 6.3 kg

DRUGS (1)
  1. BABY TEETHING (HYLAND HOMEOPATHIC) [Suspect]
     Active Substance: HOMEOPATHICS
     Indication: TEETHING
     Route: 060
     Dates: start: 20160930, end: 20161001

REACTIONS (3)
  - Dysuria [None]
  - Abnormal behaviour [None]
  - Somnolence [None]

NARRATIVE: CASE EVENT DATE: 20160930
